FAERS Safety Report 16186008 (Version 1)
Quarter: 2019Q2

REPORT INFORMATION
  Report Type: Other
  Country: CA (occurrence: CA)
  Receive Date: 20190411
  Receipt Date: 20190411
  Transmission Date: 20190711
  Serious: Yes (Death, Hospitalization, Other)
  Sender: FDA-Public Use
  Company Number: CA-PFIZER INC-2019151156

PATIENT
  Age: 30 Year
  Sex: Female

DRUGS (4)
  1. NOREPINEPHRINE. [Concomitant]
     Active Substance: NOREPINEPHRINE
     Dosage: UNK
  2. HYDROMORPHONE HYDROCHLORIDE. [Suspect]
     Active Substance: HYDROMORPHONE HYDROCHLORIDE
     Indication: ABDOMINAL PAIN
     Dosage: UNK
     Route: 050
  3. HYDROMORPHONE [Suspect]
     Active Substance: HYDROMORPHONE
     Indication: ABDOMINAL PAIN
     Dosage: UNK
     Route: 048
  4. MILRINONE [Concomitant]
     Active Substance: MILRINONE
     Dosage: UNK

REACTIONS (4)
  - Reaction to excipient [Fatal]
  - Intentional product misuse [Unknown]
  - Incorrect route of product administration [Fatal]
  - Pulmonary vascular disorder [Fatal]
